FAERS Safety Report 9413567 (Version 1)
Quarter: 2013Q2

REPORT INFORMATION
  Report Type: Spontaneous
  Country: CA (occurrence: CA)
  Receive Date: 20130627
  Receipt Date: 20130627
  Transmission Date: 20140414
  Serious: Yes (Other)
  Sender: FDA-Public Use
  Company Number: SYM-2013-04652

PATIENT
  Age: 35 Year
  Sex: Female

DRUGS (1)
  1. ELIDEL [Suspect]
     Indication: RASH
     Route: 061
     Dates: start: 2006, end: 2007

REACTIONS (1)
  - Hodgkin^s disease [None]
